FAERS Safety Report 5702986-1 (Version None)
Quarter: 2008Q2

REPORT INFORMATION
  Report Type: 
  Country: None (occurrence: None)
  Receive Date: 20080408
  Receipt Date: 20080326
  Transmission Date: 20081010
  Serious: Yes (Other)
  Sender: FDA-Public Use
  Company Number: 2008S1000056

PATIENT
  Age: 5 Day
  Sex: Male

DRUGS (2)
  1. NITRIC OXIDE [Suspect]
     Indication: LUNG DISORDER
     Dosage: 5 PPM; CONT; INH
     Route: 055
     Dates: start: 20070813, end: 20070903
  2. NITRIC OXIDE [Suspect]
     Indication: PROPHYLAXIS
     Dosage: 5 PPM; CONT; INH
     Route: 055
     Dates: start: 20070813, end: 20070903

REACTIONS (8)
  - ABDOMINAL DISTENSION [None]
  - INTRAVENTRICULAR HAEMORRHAGE NEONATAL [None]
  - JEJUNAL PERFORATION [None]
  - NEONATAL DISORDER [None]
  - NEONATAL HYPOTENSION [None]
  - NEONATAL TACHYPNOEA [None]
  - NO THERAPEUTIC RESPONSE [None]
  - PNEUMOTHORAX [None]
